FAERS Safety Report 4339802-9 (Version None)
Quarter: 2004Q2

REPORT INFORMATION
  Report Type: 
  Country: None (occurrence: None)
  Receive Date: 20040416
  Receipt Date: 20030826
  Transmission Date: 20050107
  Serious: No
  Sender: FDA-Public Use
  Company Number: US-BRISTOL-MYERS SQUIBB COMPANY-12367033

PATIENT
  Sex: Female

DRUGS (1)
  1. CAPTOPRIL [Suspect]

REACTIONS (1)
  - ADVERSE EVENT [None]
